FAERS Safety Report 4589555-4 (Version None)
Quarter: 2005Q1

REPORT INFORMATION
  Report Type: 
  Country: None (occurrence: None)
  Receive Date: 20050216
  Receipt Date: 20050203
  Transmission Date: 20050727
  Serious: Yes (Hospitalization)
  Sender: FDA-Public Use
  Company Number: A015018

PATIENT
  Age: 43 Year
  Sex: Male
  Weight: 95.2554 kg

DRUGS (4)
  1. VIAGRA [Suspect]
     Indication: ERECTILE DYSFUNCTION
     Dosage: 100 MG (1 IN 1 D), ORAL
     Route: 048
     Dates: start: 19990701
  2. LITHIUM (LITHIUM) [Suspect]
     Indication: AFFECTIVE DISORDER
     Dosage: ORAL
     Route: 048
  3. DOTHIEPIN HYDROCHLORIDE [Concomitant]
  4. FLUPENTIXOL (FLUPENTIXOL) [Concomitant]

REACTIONS (9)
  - AFFECTIVE DISORDER [None]
  - CONDITION AGGRAVATED [None]
  - DEPRESSION [None]
  - DRUG INTERACTION [None]
  - ELEVATED MOOD [None]
  - ERECTILE DYSFUNCTION [None]
  - MANIA [None]
  - PARANOIA [None]
  - SUICIDAL IDEATION [None]
